FAERS Safety Report 24191415 (Version 1)
Quarter: 2024Q3

REPORT INFORMATION
  Report Type: Report from Study
  Country: US (occurrence: None)
  Receive Date: 20240808
  Receipt Date: 20240808
  Transmission Date: 20241016
  Serious: Yes (Other)
  Sender: ASTRAZENECA
  Company Number: 2024A175482

PATIENT
  Sex: Male

DRUGS (1)
  1. CALQUENCE [Suspect]
     Active Substance: ACALABRUTINIB
     Indication: Chronic lymphocytic leukaemia
     Route: 048
     Dates: start: 202405

REACTIONS (8)
  - Choking [Unknown]
  - Metastases to lymph nodes [Unknown]
  - Mobility decreased [Unknown]
  - Dry throat [Unknown]
  - Lymphadenopathy [Unknown]
  - Sputum abnormal [Unknown]
  - Musculoskeletal chest pain [Unknown]
  - Fatigue [Unknown]
